FAERS Safety Report 17629092 (Version 14)
Quarter: 2021Q2

REPORT INFORMATION
  Report Type: Spontaneous
  Country: US (occurrence: US)
  Receive Date: 20200406
  Receipt Date: 20210603
  Transmission Date: 20210716
  Serious: Yes (Hospitalization, Other)
  Sender: FDA-Public Use
  Company Number: US-ALLERGAN-2007648US

PATIENT
  Sex: Female
  Weight: 54.43 kg

DRUGS (19)
  1. ONE A DAY WOMEN^S [Concomitant]
     Active Substance: MINERALS\VITAMINS
     Dosage: 1 DF, QD
     Route: 048
  2. GAS?X [Concomitant]
     Active Substance: DIMETHICONE
     Indication: FLATULENCE
     Dosage: 1 DF, QID
     Route: 048
  3. FLONASE [Concomitant]
     Active Substance: FLUTICASONE PROPIONATE
  4. CANASA [Suspect]
     Active Substance: MESALAMINE
     Indication: COLITIS ULCERATIVE
     Dosage: 1000 MG
     Route: 054
  5. ICAR?C [Concomitant]
     Dosage: 1 DF, BID
     Route: 048
  6. NEURONTIN [Concomitant]
     Active Substance: GABAPENTIN
     Dosage: 100 MG, TID
     Route: 048
  7. ANTIOXIDANT [Concomitant]
     Active Substance: UNSPECIFIED INGREDIENT
     Route: 048
  8. NORCO [Concomitant]
     Active Substance: ACETAMINOPHEN\HYDROCODONE BITARTRATE
     Dosage: UNK, Q6HR
     Route: 048
  9. CARTONYL 100MG WITH VITAMINC C 250MG [Concomitant]
     Dosage: 1 DF, QD
     Route: 048
  10. KENALOG [Concomitant]
     Active Substance: TRIAMCINOLONE ACETONIDE
  11. SIMETHICONE (DIMETHICONE) [Concomitant]
     Active Substance: DIMETHICONE
  12. MESALAZINE 1 GM SUP [Suspect]
     Active Substance: MESALAMINE
     Indication: COLITIS ULCERATIVE
     Dosage: 1000 MG
     Route: 054
  13. CALCIUM CITRATE WITH VITAMIN D [Concomitant]
     Active Substance: CALCIUM CITRATE\VITAMIN D
     Dosage: 2 DF, BID
     Route: 048
  14. FOSAMAX [Concomitant]
     Active Substance: ALENDRONATE SODIUM
  15. SUPREP BOWEL PREP [Concomitant]
     Active Substance: MAGNESIUM SULFATE\POTASSIUM SULFATE\SODIUM SULFATE
     Dosage: 1 DF
     Route: 048
  16. BENTYL [Concomitant]
     Active Substance: DICYCLOMINE HYDROCHLORIDE
     Dosage: 10 MG, QID
     Route: 048
  17. SULFASALAZINE. [Concomitant]
     Active Substance: SULFASALAZINE
     Indication: COLITIS ULCERATIVE
     Dosage: 2 DF, BID
     Route: 048
  18. IRON [Concomitant]
     Active Substance: IRON
     Dosage: UNK
  19. AZULFIDINE [Concomitant]
     Active Substance: SULFASALAZINE

REACTIONS (27)
  - Condition aggravated [Unknown]
  - Urinary tract infection [Unknown]
  - Hypoaesthesia [Not Recovered/Not Resolved]
  - Anal haemorrhage [Recovered/Resolved]
  - Epistaxis [Unknown]
  - Somnolence [Unknown]
  - Weight decreased [Unknown]
  - Stress [Unknown]
  - Aortic valve incompetence [Unknown]
  - Colitis [Unknown]
  - Cystitis [Unknown]
  - Eating disorder [Unknown]
  - Nausea [Unknown]
  - Feeling abnormal [Unknown]
  - Movement disorder [Not Recovered/Not Resolved]
  - Colitis ulcerative [Unknown]
  - Abdominal pain [Unknown]
  - Cardiac disorder [Unknown]
  - Discomfort [Unknown]
  - Illness [Unknown]
  - Pain [Unknown]
  - Wound [Unknown]
  - Ovarian cancer stage III [Recovering/Resolving]
  - Abdominal wall mass [Unknown]
  - Proctalgia [Not Recovered/Not Resolved]
  - Appetite disorder [Unknown]
  - Frequent bowel movements [Unknown]

NARRATIVE: CASE EVENT DATE: 201901
